FAERS Safety Report 7391414-9 (Version None)
Quarter: 2011Q2

REPORT INFORMATION
  Report Type: 
  Country: None (occurrence: None)
  Receive Date: 20110404
  Receipt Date: 20110331
  Transmission Date: 20111010
  Serious: Yes (Life-Threatening, Hospitalization, Other)
  Sender: FDA-Public Use
  Company Number: DE-JNJFOC-20110400485

PATIENT
  Age: 20 Year
  Sex: Male
  Weight: 89 kg

DRUGS (3)
  1. METHOTREXATE [Concomitant]
     Indication: ILL-DEFINED DISORDER
  2. SIMPONI [Suspect]
     Indication: PSORIATIC ARTHROPATHY
     Route: 058
  3. PREDNISOLONE [Concomitant]
     Indication: ILL-DEFINED DISORDER
     Route: 048

REACTIONS (1)
  - DYSPNOEA [None]
